FAERS Safety Report 5632171-3 (Version None)
Quarter: 2008Q1

REPORT INFORMATION
  Report Type: 
  Country: None (occurrence: None)
  Receive Date: 20080220
  Receipt Date: 20080206
  Transmission Date: 20080703
  Serious: Yes (Other)
  Sender: FDA-Public Use
  Company Number: US-PFIZER INC-2008012484

PATIENT
  Sex: Female
  Weight: 84.4 kg

DRUGS (3)
  1. CHANTIX [Suspect]
     Indication: SMOKING CESSATION THERAPY
  2. ABILIFY [Concomitant]
  3. SEROQUEL [Concomitant]

REACTIONS (3)
  - CONSTIPATION [None]
  - DYSKINESIA [None]
  - INSOMNIA [None]
